FAERS Safety Report 25982003 (Version 2)
Quarter: 2025Q4

REPORT INFORMATION
  Report Type: Report from Study
  Country: EU (occurrence: EU)
  Receive Date: 20251031
  Receipt Date: 20251118
  Transmission Date: 20260118
  Serious: Yes (Other)
  Sender: AUROBINDO
  Company Number: EU-EMA-DD-20251013-7482827-135728

PATIENT
  Age: 11 Year
  Sex: Female

DRUGS (3)
  1. PREDNISOLONE [Suspect]
     Active Substance: PREDNISOLONE
     Indication: Immunosuppression
     Dosage: GRADUALLY WITHDRAWN AND STOPPED 9 MONTHS AFTER TRANSPLANTATION
     Route: 065
  2. EVEROLIMUS [Suspect]
     Active Substance: EVEROLIMUS
     Indication: Immunosuppression
     Dosage: UNK
     Route: 065
  3. CYCLOSPORINE [Suspect]
     Active Substance: CYCLOSPORINE
     Indication: Immunosuppression
     Dosage: DOSE REDUCED TO 50 PERCENT
     Route: 065

REACTIONS (2)
  - Viraemia [Recovering/Resolving]
  - BK virus infection [Recovered/Resolved]
